FAERS Safety Report 8034198-3 (Version None)
Quarter: 2012Q1

REPORT INFORMATION
  Report Type: 
  Country: None (occurrence: None)
  Receive Date: 20120110
  Receipt Date: 20120103
  Transmission Date: 20120608
  Serious: Yes (Hospitalization)
  Sender: FDA-Public Use
  Company Number: FR-JNJFOC-20120100962

PATIENT
  Age: 45 Year
  Sex: Male

DRUGS (5)
  1. FIVASA [Concomitant]
     Indication: COLITIS ULCERATIVE
  2. PURINETHOL [Suspect]
     Indication: COLITIS ULCERATIVE
  3. REMICADE [Suspect]
     Indication: COLITIS ULCERATIVE
     Route: 042
     Dates: start: 20110601
  4. PREDNISOLONE [Suspect]
     Indication: COLITIS ULCERATIVE
     Route: 048
  5. IMURAN [Concomitant]
     Indication: COLITIS ULCERATIVE
     Dates: start: 20101101

REACTIONS (1)
  - LISTERIOSIS [None]
